FAERS Safety Report 5763751-2 (Version None)
Quarter: 2008Q2

REPORT INFORMATION
  Report Type: 
  Country: None (occurrence: None)
  Receive Date: 20080606
  Receipt Date: 20080606
  Transmission Date: 20081010
  Serious: Yes (Hospitalization)
  Sender: FDA-Public Use
  Company Number: None

PATIENT
  Sex: Male
  Weight: 87.2 kg

DRUGS (2)
  1. CAPECITABINE 500MG LOT U8042 EXPIRE 11/2008 [Suspect]
     Indication: OESOPHAGEAL CARCINOMA
     Dosage: 2,500 M-F QD X 29 DAYS PO
     Route: 048
     Dates: start: 20071011, end: 20071220
  2. OXALIPLATIN [Suspect]
     Indication: OESOPHAGEAL CARCINOMA
     Dosage: 184,45 MG Q2 WEEKS, X3 IV
     Route: 042
     Dates: start: 20071011, end: 20071108

REACTIONS (5)
  - CHEST PAIN [None]
  - PERICARDIAL EFFUSION [None]
  - PERICARDITIS [None]
  - PLEUROPERICARDITIS [None]
  - POST PROCEDURAL COMPLICATION [None]
